FAERS Safety Report 25368450 (Version 1)
Quarter: 2025Q2

REPORT INFORMATION
  Report Type: Report from Study
  Country: US (occurrence: US)
  Receive Date: 20250528
  Receipt Date: 20250528
  Transmission Date: 20250717
  Serious: Yes (Other)
  Sender: BAUSCH AND LOMB
  Company Number: US-BAUSCH-BL-2024-008815

PATIENT
  Age: 65 Year
  Sex: Female

DRUGS (1)
  1. VASOTEC [Suspect]
     Active Substance: ENALAPRIL MALEATE
     Indication: Product used for unknown indication
     Route: 048

REACTIONS (5)
  - Autoimmune disorder [Unknown]
  - Oral infection [Not Recovered/Not Resolved]
  - Ill-defined disorder [Unknown]
  - Malaise [Unknown]
  - Poor quality sleep [Unknown]

NARRATIVE: CASE EVENT DATE: 20240101
